FAERS Safety Report 19719710 (Version 2)
Quarter: 2022Q1

REPORT INFORMATION
  Report Type: Spontaneous
  Country: US (occurrence: US)
  Receive Date: 20210818
  Receipt Date: 20220210
  Transmission Date: 20220424
  Serious: No
  Sender: FDA-Public Use
  Company Number: US-PFIZER INC-2019034082

PATIENT
  Age: 12 Year
  Sex: Female

DRUGS (3)
  1. GENOTROPIN [Suspect]
     Active Substance: SOMATROPIN
     Indication: Adrenocorticotropic hormone deficiency
     Dosage: 1.5 MG, DAILY
  2. GENOTROPIN [Suspect]
     Active Substance: SOMATROPIN
     Indication: Secondary hypogonadism
     Dosage: 0.3 MG
     Dates: start: 2006
  3. GENOTROPIN [Suspect]
     Active Substance: SOMATROPIN
     Indication: Blood thyroid stimulating hormone
     Dosage: UNK

REACTIONS (4)
  - Off label use [Unknown]
  - Device information output issue [Unknown]
  - Device mechanical issue [Unknown]
  - Drug dose omission by device [Unknown]

NARRATIVE: CASE EVENT DATE: 20210701
